FAERS Safety Report 6328977-8 (Version None)
Quarter: 2009Q3

REPORT INFORMATION
  Report Type: 
  Country: None (occurrence: None)
  Receive Date: 20090824
  Receipt Date: 20090824
  Transmission Date: 20100115
  Serious: Yes (Hospitalization)
  Sender: FDA-Public Use
  Company Number: None

PATIENT
  Sex: Female
  Weight: 65.318 kg

DRUGS (2)
  1. TRAZODONE HCL [Suspect]
     Indication: INSOMNIA
     Dosage: TAKEN OCASSIONALLY
     Dates: start: 20080101, end: 20090702
  2. TRAZODONE HCL [Concomitant]

REACTIONS (6)
  - BRADYCARDIA [None]
  - DIZZINESS [None]
  - EXTRASYSTOLES [None]
  - HYPOTENSION [None]
  - NAUSEA [None]
  - VOMITING [None]
